FAERS Safety Report 17150094 (Version 1)
Quarter: 2019Q4

REPORT INFORMATION
  Report Type: Spontaneous
  Country: IT (occurrence: IT)
  Receive Date: 20191213
  Receipt Date: 20191213
  Transmission Date: 20200122
  Serious: Yes (Hospitalization)
  Sender: FDA-Public Use
  Company Number: NVSC2019IT061631

PATIENT
  Age: 78 Year
  Sex: Male
  Weight: 80 kg

DRUGS (1)
  1. SECUKINUMAB. [Suspect]
     Active Substance: SECUKINUMAB
     Indication: PSORIASIS
     Dosage: 300 MG (FORMULATION: CUTANEOUS SOLUTION)
     Route: 058
     Dates: start: 20190214, end: 20190904

REACTIONS (5)
  - Ectropion [Recovering/Resolving]
  - Drug eruption [Recovering/Resolving]
  - Skin exfoliation [Recovering/Resolving]
  - Face oedema [Recovering/Resolving]
  - Rash erythematous [Recovering/Resolving]

NARRATIVE: CASE EVENT DATE: 20190829
